FAERS Safety Report 10792561 (Version 3)
Quarter: 2016Q4

REPORT INFORMATION
  Report Type: Spontaneous
  Country: DK (occurrence: DK)
  Receive Date: 20150213
  Receipt Date: 20161010
  Transmission Date: 20170206
  Serious: Yes (Hospitalization)
  Sender: FDA-Public Use
  Company Number: DK-TEVA-540159ISR

PATIENT
  Sex: Male
  Weight: 91 kg

DRUGS (7)
  1. PANODIL [Suspect]
     Active Substance: ACETAMINOPHEN
     Indication: MUSCULOSKELETAL PAIN
     Dosage: 4 GRAM DAILY;
     Route: 048
  2. OXYCODONE HYDROCHLORIDE. [Suspect]
     Active Substance: OXYCODONE HYDROCHLORIDE
     Indication: MUSCULOSKELETAL PAIN
     Dosage: 10 MILLIGRAM DAILY;
     Route: 048
     Dates: start: 20130213
  3. PANTOPRAZOLE SODIUM. [Suspect]
     Active Substance: PANTOPRAZOLE SODIUM
     Indication: ABDOMINAL PAIN
     Dosage: DOSAGE: THE CITIZEN CAN NOT REMEMBER WHAT DOSE HE TOOK. FORM OF ADMIN: GASTRO-RESISTANT TABLET.
     Route: 048
     Dates: start: 20140115, end: 2014
  4. METRONIDAZOL ^DAK^ [Suspect]
     Active Substance: METRONIDAZOLE
     Indication: PRODUCT USED FOR UNKNOWN INDICATION
     Route: 048
     Dates: start: 20140115
  5. OXYNORM [Suspect]
     Active Substance: OXYCODONE HYDROCHLORIDE
     Indication: MUSCULOSKELETAL PAIN
     Dosage: 20 MILLIGRAM DAILY;
     Route: 048
     Dates: start: 20130213, end: 2013
  6. IBUMETIN [Suspect]
     Active Substance: IBUPROFEN
     Indication: MUSCULOSKELETAL PAIN
     Dosage: 1800 MILLIGRAM DAILY;
     Route: 048
     Dates: start: 20130213, end: 2013
  7. IMADRAX [Suspect]
     Active Substance: AMOXICILLIN
     Indication: ABDOMINAL PAIN
     Dosage: 1000 MILLIGRAM DAILY;
     Route: 048
     Dates: start: 20140115, end: 2014

REACTIONS (13)
  - Nausea [Not Recovered/Not Resolved]
  - Diarrhoea [Not Recovered/Not Resolved]
  - Arthralgia [Not Recovered/Not Resolved]
  - Gastrooesophageal reflux disease [Recovered/Resolved]
  - Abdominal discomfort [Recovered/Resolved]
  - Gastritis [Not Recovered/Not Resolved]
  - Dyspepsia [Not Recovered/Not Resolved]
  - Diarrhoea haemorrhagic [Not Recovered/Not Resolved]
  - Vomiting [Not Recovered/Not Resolved]
  - Eosinophilia [Not Recovered/Not Resolved]
  - Abdominal pain [Not Recovered/Not Resolved]
  - Weight decreased [Not Recovered/Not Resolved]
  - Gastrointestinal disorder [Not Recovered/Not Resolved]

NARRATIVE: CASE EVENT DATE: 2014
